FAERS Safety Report 4338654-0 (Version None)
Quarter: 2004Q2

REPORT INFORMATION
  Report Type: 
  Country: None (occurrence: None)
  Receive Date: 20040414
  Receipt Date: 20040405
  Transmission Date: 20050107
  Serious: Yes (Other)
  Sender: FDA-Public Use
  Company Number: PHEH2004US03898

PATIENT
  Age: 76 Year
  Sex: Male
  Weight: 60 kg

DRUGS (11)
  1. AREDIA [Suspect]
     Indication: MULTIPLE MYELOMA
     Dosage: 90 MG, UNK
     Dates: start: 20020130, end: 20020227
  2. ZOMETA [Suspect]
     Indication: MULTIPLE MYELOMA
     Dosage: 4MG/Q4WKS
     Dates: start: 20020405, end: 20020628
  3. ZOMETA [Suspect]
     Dosage: 4MG/Q4WKS
     Dates: start: 20030903, end: 20040218
  4. LOPRESSOR [Concomitant]
     Indication: ATRIAL FIBRILLATION
     Dosage: 25 MG, BID
     Dates: start: 20020101
  5. HYTRIN [Concomitant]
     Indication: BENIGN PROSTATIC HYPERPLASIA
     Dosage: 6 MG, QD
     Dates: start: 20000101
  6. EPOGEN [Concomitant]
     Indication: ANAEMIA
     Dosage: 60,000 UNITS/QWK
     Dates: start: 20000101
  7. NEUPOGEN [Concomitant]
     Dosage: 300 MCG/PRN
     Route: 058
     Dates: start: 20020601
  8. VITAMIN B12 NOS W/VITAMIN B6 [Concomitant]
     Dates: start: 20030101
  9. FOLIC ACID [Concomitant]
     Dates: start: 20030101
  10. VITAMIN C [Concomitant]
     Dosage: 500 MG, QD
  11. DECADRON [Concomitant]
     Dosage: 40MG QD X 4DAYS X 3 ROUNDS QMO
     Dates: start: 20020801

REACTIONS (5)
  - ABSCESS [None]
  - IMPAIRED HEALING [None]
  - INFECTION [None]
  - PYREXIA [None]
  - TOOTH EXTRACTION [None]
